FAERS Safety Report 6306810-8 (Version None)
Quarter: 2009Q3

REPORT INFORMATION
  Report Type: 
  Country: None (occurrence: None)
  Receive Date: 20090812
  Receipt Date: 20090730
  Transmission Date: 20100115
  Serious: Yes (Hospitalization)
  Sender: FDA-Public Use
  Company Number: FR-JNJFOC-20090802984

PATIENT
  Sex: Male

DRUGS (7)
  1. TRAMADOL HCL [Suspect]
     Indication: RHEUMATOID ARTHRITIS
     Route: 048
  2. BI-PROFENID [Suspect]
     Indication: RHEUMATOID ARTHRITIS
     Route: 048
  3. CORTANCYL [Suspect]
     Indication: RHEUMATOID ARTHRITIS
     Route: 048
  4. ENBREL [Suspect]
     Indication: RHEUMATOID ARTHRITIS
     Route: 058
  5. METOJECT [Suspect]
     Indication: RHEUMATOID ARTHRITIS
     Route: 058
  6. SPECIAFOLDINE [Concomitant]
     Route: 065
  7. EUPANTOL [Concomitant]
     Route: 065

REACTIONS (2)
  - HYPERTHERMIA [None]
  - STREPTOCOCCAL SEPSIS [None]
